FAERS Safety Report 7824554-8 (Version None)
Quarter: 2011Q4

REPORT INFORMATION
  Report Type: 
  Country: None (occurrence: None)
  Receive Date: 20111019
  Receipt Date: 20111005
  Transmission Date: 20120403
  Serious: Yes (Hospitalization, Other)
  Sender: FDA-Public Use
  Company Number: US-ELI_LILLY_AND_COMPANY-US201008004124

PATIENT
  Sex: Female
  Weight: 58 kg

DRUGS (5)
  1. OXYGEN [Concomitant]
  2. RECLAST [Concomitant]
  3. FORTEO [Suspect]
     Indication: OSTEOPOROSIS
     Dosage: 20 UG, DAILY (1/D)
     Dates: start: 20100429
  4. ANALGESICS [Concomitant]
  5. FORTEO [Suspect]
     Dosage: 20 UG, QD

REACTIONS (16)
  - HERPES ZOSTER [None]
  - DYSPNOEA [None]
  - HOSPITALISATION [None]
  - LUNG DISORDER [None]
  - URINE ODOUR ABNORMAL [None]
  - TERMINAL STATE [None]
  - ARTHRITIS [None]
  - BACK PAIN [None]
  - SPINAL FRACTURE [None]
  - PAIN [None]
  - PLEURISY [None]
  - CHRONIC OBSTRUCTIVE PULMONARY DISEASE [None]
  - RESPIRATORY DISORDER [None]
  - DRUG INEFFECTIVE [None]
  - DIABETES MELLITUS [None]
  - MUSCLE SPASMS [None]
